FAERS Safety Report 9283671 (Version 1)
Quarter: 2013Q2

REPORT INFORMATION
  Report Type: Spontaneous
  Country: US (occurrence: None)
  Receive Date: 20130508
  Receipt Date: 20130508
  Transmission Date: 20140414
  Serious: Yes (Death, Hospitalization)
  Sender: FDA-Public Use
  Company Number: TPA2013A03309

PATIENT
  Age: 50 Year
  Sex: Male

DRUGS (3)
  1. RAMELTEON [Suspect]
     Indication: INSOMNIA
     Dosage: 8 MG, 1 IN 1 D, ORAL
     Route: 048
  2. ALPRAZOLAM(ALPRAZOLAM) (ALPRAZOLAM) [Concomitant]
  3. ESCITALOPRAM(ESCITALOPRAM) [Concomitant]

REACTIONS (7)
  - Autoimmune hepatitis [None]
  - Fatigue [None]
  - Hepatosplenomegaly [None]
  - Ascites [None]
  - Hepatitis fulminant [None]
  - Peritonitis bacterial [None]
  - Systemic inflammatory response syndrome [None]
